FAERS Safety Report 5885655-7 (Version None)
Quarter: 2008Q3

REPORT INFORMATION
  Report Type: 
  Country: None (occurrence: None)
  Receive Date: 20080912
  Receipt Date: 20080905
  Transmission Date: 20090109
  Serious: Yes (Hospitalization)
  Sender: FDA-Public Use
  Company Number: OMPQ-NO-0809S-0783

PATIENT
  Age: 66 Year
  Sex: Female

DRUGS (1)
  1. OMNIPAQUE 140 [Suspect]
     Indication: DRUG USE FOR UNKNOWN INDICATION
     Dosage: 75 ML, SINGLE DOES, I.V.
     Route: 042
     Dates: start: 20080904, end: 20080904

REACTIONS (4)
  - CHILLS [None]
  - DYSPHEMIA [None]
  - HYPERTENSIVE CRISIS [None]
  - SPEECH DISORDER [None]
